FAERS Safety Report 5928466-6 (Version None)
Quarter: 2008Q4

REPORT INFORMATION
  Report Type: 
  Country: None (occurrence: None)
  Receive Date: 20081023
  Receipt Date: 20081015
  Transmission Date: 20090506
  Serious: Yes (Hospitalization)
  Sender: FDA-Public Use
  Company Number: PHHO2000HU00944

PATIENT
  Sex: Male
  Weight: 81 kg

DRUGS (3)
  1. MYCOPHENOLIC ACID [Suspect]
     Dosage: 720 MG, BID
     Route: 048
     Dates: start: 20000120, end: 20000302
  2. METHYLPREDNISOLONE 16MG TAB [Concomitant]
  3. SANDIMMUNE [Concomitant]

REACTIONS (4)
  - GASTRITIS [None]
  - HIATUS HERNIA [None]
  - LEUKOPENIA [None]
  - OESOPHAGITIS [None]
